FAERS Safety Report 9448196 (Version 2)
Quarter: 2013Q3

REPORT INFORMATION
  Report Type: Spontaneous
  Country: IT (occurrence: IT)
  Receive Date: 20130808
  Receipt Date: 20130819
  Transmission Date: 20140515
  Serious: Yes (Other)
  Sender: FDA-Public Use
  Company Number: IT-RANBAXY-2013RR-72029

PATIENT
  Sex: Male

DRUGS (6)
  1. AMOXICILLIN/CLAVULANIC ACID [Suspect]
     Indication: PRODUCT USED FOR UNKNOWN INDICATION
     Dosage: UNK
     Route: 065
  2. AMOXICILLIN/CLAVULANIC ACID [Suspect]
     Indication: PRODUCT USED FOR UNKNOWN INDICATION
     Dosage: UNK
     Route: 065
  3. AMOXICILLIN/CLAVULANIC ACID [Suspect]
     Indication: ALLERGY TEST
     Dosage: UNK
     Route: 048
  4. AMOXICILLIN/CLAVULANIC ACID [Suspect]
     Indication: ALLERGY TEST
     Dosage: UNK
     Route: 048
  5. AMOXICILLIN [Suspect]
     Indication: EAR INFECTION
     Dosage: ONE DOSE
     Route: 065
  6. AMOXICILLIN [Suspect]
     Indication: ALLERGY TEST
     Dosage: UNK
     Route: 048

REACTIONS (3)
  - Dermatitis exfoliative [Recovered/Resolved]
  - Angioedema [Recovered/Resolved]
  - Conjunctivitis [Recovered/Resolved]
